FAERS Safety Report 24571953 (Version 1)
Quarter: 2024Q4

REPORT INFORMATION
  Report Type: Spontaneous
  Country: US (occurrence: None)
  Receive Date: 20241031
  Receipt Date: 20241031
  Transmission Date: 20250115
  Serious: Yes (Life-Threatening, Hospitalization, Disabling)
  Sender: Public
  Company Number: None

PATIENT
  Age: 51 Year
  Sex: Female
  Weight: 63.3 kg

DRUGS (1)
  1. CLOZAPINE [Suspect]
     Active Substance: CLOZAPINE
     Indication: Schizophrenia
     Dosage: FREQUENCY : AT BEDTIME;?
     Route: 048
     Dates: start: 20220202, end: 20241025

REACTIONS (7)
  - Circulatory collapse [None]
  - Small intestinal obstruction [None]
  - Portal venous gas [None]
  - Pneumobilia [None]
  - Hypovolaemic shock [None]
  - Acute kidney injury [None]
  - Gastrointestinal hypomotility [None]

NARRATIVE: CASE EVENT DATE: 20241026
